FAERS Safety Report 5367127-1 (Version None)
Quarter: 2007Q2

REPORT INFORMATION
  Report Type: 
  Country: None (occurrence: None)
  Receive Date: 20070620
  Receipt Date: 20070620
  Transmission Date: 20071010
  Serious: Yes (Hospitalization)
  Sender: FDA-Public Use
  Company Number: None

PATIENT
  Age: 67 Year
  Sex: Male

DRUGS (4)
  1. WARFARIN SODIUM [Suspect]
     Indication: ATRIAL FIBRILLATION
     Dosage: 10MG EVERY DAY PO
     Route: 048
     Dates: start: 20030130
  2. WARFARIN SODIUM [Suspect]
     Indication: CLOSTRIDIAL INFECTION
     Dosage: 10MG EVERY DAY PO
     Route: 048
     Dates: start: 20030130
  3. WARFARIN SODIUM [Suspect]
     Indication: DRUG THERAPY
     Dosage: 10MG EVERY DAY PO
     Route: 048
     Dates: start: 20030130
  4. METRONIDAZOLE [Suspect]
     Dosage: 500MG TID PO
     Route: 048

REACTIONS (1)
  - INTERNATIONAL NORMALISED RATIO INCREASED [None]
